FAERS Safety Report 13426621 (Version 1)
Quarter: 2017Q2

REPORT INFORMATION
  Report Type: Spontaneous
  Country: US (occurrence: US)
  Receive Date: 20170411
  Receipt Date: 20170411
  Transmission Date: 20170830
  Serious: No
  Sender: FDA-Public Use
  Company Number: None

PATIENT
  Age: 48 Year
  Sex: Female
  Weight: 95.3 kg

DRUGS (2)
  1. BUPRENORPHINE NALOXONE FILM 8-2 [Suspect]
     Active Substance: BUPRENORPHINE\NALOXONE
     Indication: PAIN
  2. BUPRENORPHINE NALOXONE FILM 8-2 [Suspect]
     Active Substance: BUPRENORPHINE\NALOXONE
     Indication: DRUG USE DISORDER

REACTIONS (1)
  - Nausea [None]
